FAERS Safety Report 8523842-X (Version None)
Quarter: 2012Q3

REPORT INFORMATION
  Report Type: 
  Country: None (occurrence: None)
  Receive Date: 20120720
  Receipt Date: 20120712
  Transmission Date: 20120928
  Serious: Yes (Hospitalization)
  Sender: FDA-Public Use
  Company Number: US-BAYER-2012-071681

PATIENT
  Age: 47 Year
  Sex: Female
  Weight: 83.855 kg

DRUGS (9)
  1. VICODIN [Concomitant]
     Dosage: 5 MG/500 MG
     Route: 048
     Dates: start: 20050513
  2. CLINDESSE [Concomitant]
     Dosage: 2 %, UNK
     Route: 067
     Dates: start: 20050803
  3. ALESSE [Concomitant]
  4. CHROMAGEN FORTE [Concomitant]
     Dosage: UNK
     Route: 048
     Dates: start: 20050806
  5. YASMIN [Suspect]
     Indication: DYSMENORRHOEA
  6. NORVASC [Concomitant]
     Dosage: 5 MG, UNK
     Route: 048
  7. IRON [Concomitant]
     Dosage: UNK UNK, TID
     Route: 048
  8. YASMIN [Suspect]
     Indication: DYSFUNCTIONAL UTERINE BLEEDING
  9. DIOVAN [Concomitant]
     Dosage: 160 MG, UNK
     Route: 048

REACTIONS (3)
  - DEEP VEIN THROMBOSIS [None]
  - PULMONARY EMBOLISM [None]
  - ACUTE MYOCARDIAL INFARCTION [None]
